FAERS Safety Report 22049304 (Version 1)
Quarter: 2023Q1

REPORT INFORMATION
  Report Type: Spontaneous
  Country: US (occurrence: US)
  Receive Date: 20230301
  Receipt Date: 20230301
  Transmission Date: 20230418
  Serious: No
  Sender: FDA-Public Use
  Company Number: US-AMNEAL PHARMACEUTICALS-2022-AMRX-04202

PATIENT
  Sex: Male

DRUGS (1)
  1. RIVASTIGMINE [Suspect]
     Active Substance: RIVASTIGMINE
     Indication: Dementia
     Route: 062

REACTIONS (4)
  - Wrong technique in device usage process [Unknown]
  - Product adhesion issue [Unknown]
  - Application site pruritus [Unknown]
  - Application site erythema [Unknown]
